FAERS Safety Report 8234741-5 (Version None)
Quarter: 2012Q1

REPORT INFORMATION
  Report Type: 
  Country: None (occurrence: None)
  Receive Date: 20120326
  Receipt Date: 20120314
  Transmission Date: 20120608
  Serious: Yes (Hospitalization)
  Sender: FDA-Public Use
  Company Number: US-CELGENEUS-163-21880-12011246

PATIENT
  Sex: Female

DRUGS (25)
  1. REVLIMID [Suspect]
     Dosage: 5 MILLIGRAM
     Dates: start: 20120101
  2. ALBUTEROL [Concomitant]
     Indication: ASTHMA
     Dosage: 2 PUFFS
     Route: 065
  3. LASIX [Concomitant]
     Dosage: 40
     Route: 048
  4. MECLIZINE [Concomitant]
     Indication: VERTIGO
     Dosage: 25 MILLIGRAM
     Route: 065
  5. LOPRESSOR [Concomitant]
     Dosage: 30 MILLIGRAM
     Route: 048
  6. TRAMADOL HCL [Concomitant]
     Indication: PAIN
     Dosage: 50
     Route: 048
  7. AMBIEN [Concomitant]
     Dosage: 10
     Route: 065
  8. PHENYLEPHRINE HCL [Concomitant]
     Route: 065
  9. CLONIDINE [Concomitant]
     Indication: HYPERTENSION
     Route: 065
  10. LANTUS [Concomitant]
     Route: 065
  11. DECADRON [Concomitant]
     Route: 065
  12. GLIPIZIDE [Concomitant]
     Dosage: 5 MILLIGRAM
     Route: 065
  13. COUMADIN [Concomitant]
     Dosage: 5 MILLIGRAM
     Route: 065
  14. REVLIMID [Suspect]
     Indication: MULTIPLE MYELOMA
     Dosage: 25 MILLIGRAM
     Route: 048
     Dates: start: 20090324, end: 20090411
  15. AMIODARONE HCL [Concomitant]
     Dosage: 200 MILLIGRAM
     Route: 065
  16. CATAPRES [Concomitant]
     Dosage: .1 MILLIGRAM
     Route: 065
  17. NASACORT [Concomitant]
     Route: 065
  18. AZOR [Concomitant]
     Dosage: 10/20
     Route: 048
  19. ZOLPIDEM [Concomitant]
     Route: 065
  20. METFORMIN HCL [Concomitant]
     Dosage: 1000
     Route: 065
  21. TRANSFUSION [Concomitant]
     Route: 041
  22. CHLORPHENIRAMINE DM [Concomitant]
     Route: 065
  23. AMLODIPINE [Concomitant]
     Indication: HYPERTENSION
     Route: 065
  24. CALCIUM CARBONATE [Concomitant]
     Dosage: 500
     Route: 065
  25. CERON SYRUP DM [Concomitant]
     Route: 065

REACTIONS (3)
  - NASOPHARYNGITIS [None]
  - MALAISE [None]
  - DRUG INTOLERANCE [None]
